FAERS Safety Report 4654784-8 (Version None)
Quarter: 2005Q2

REPORT INFORMATION
  Report Type: 
  Country: None (occurrence: None)
  Receive Date: 20050504
  Receipt Date: 20050425
  Transmission Date: 20051028
  Serious: Yes (Hospitalization)
  Sender: FDA-Public Use
  Company Number: 205670

PATIENT
  Age: 45 Year
  Sex: Female

DRUGS (5)
  1. AVONEX [Suspect]
     Indication: MULTIPLE SCLEROSIS
     Dosage: 30 UG; QW; IM
     Route: 030
     Dates: start: 20041005, end: 20050404
  2. FLIXOTIDE [Concomitant]
  3. LYRICA [Concomitant]
  4. OMEPRAZOLE [Concomitant]
  5. BRICANYL INHALER [Concomitant]

REACTIONS (6)
  - COLD SWEAT [None]
  - HEART RATE INCREASED [None]
  - INFLUENZA LIKE ILLNESS [None]
  - PALPITATIONS [None]
  - PYREXIA [None]
  - TREMOR [None]
